FAERS Safety Report 10183092 (Version 2)
Quarter: 2014Q3

REPORT INFORMATION
  Report Type: Spontaneous
  Country: IT (occurrence: None)
  Receive Date: 20140516
  Receipt Date: 20140805
  Transmission Date: 20150326
  Serious: Yes (Other)
  Sender: FDA-Public Use
  Company Number: AUR-APL-2014-05646

PATIENT
  Age: 71 Year
  Sex: Female

DRUGS (4)
  1. CARDIOASPIRIN (ACETYLSALICYLIC ACID) [Concomitant]
     Active Substance: ASPIRIN
  2. EUTIROX (LEVOTHYROXINE SODIUM) [Concomitant]
     Active Substance: LEVOTHYROXINE SODIUM
  3. LEXOTAN (BROMAZEPAM) [Concomitant]
  4. CITALOPRAM [Suspect]
     Active Substance: CITALOPRAM HYDROBROMIDE
     Indication: PRODUCT USED FOR UNKNOWN INDICATION
     Route: 048
     Dates: start: 20131216, end: 20131216

REACTIONS (5)
  - Language disorder [None]
  - Drug abuse [None]
  - Drop attacks [None]
  - Psychomotor retardation [None]
  - Fall [None]

NARRATIVE: CASE EVENT DATE: 20131216
